FAERS Safety Report 6080350-6 (Version None)
Quarter: 2009Q1

REPORT INFORMATION
  Report Type: 
  Country: None (occurrence: None)
  Receive Date: 20090121
  Receipt Date: 20071130
  Transmission Date: 20090719
  Serious: Yes (Other)
  Sender: FDA-Public Use
  Company Number: HQWYE553124FEB05

PATIENT
  Age: 66 Year
  Sex: Female

DRUGS (3)
  1. PREMPRO [Suspect]
     Dosage: ORAL
     Route: 048
     Dates: start: 19700101, end: 20020101
  2. PREMARIN [Suspect]
  3. PROVERA [Suspect]

REACTIONS (1)
  - OVARIAN CANCER METASTATIC [None]
